FAERS Safety Report 24864292 (Version 1)
Quarter: 2025Q1

REPORT INFORMATION
  Report Type: Spontaneous
  Country: US (occurrence: US)
  Receive Date: 20250120
  Receipt Date: 20250120
  Transmission Date: 20250409
  Serious: Yes (Other)
  Sender: PROACTIV
  Company Number: US-The Proactiv LLC-2169423

PATIENT
  Sex: Female

DRUGS (3)
  1. PROACTIV PLUS SMOOTHING BHA [Suspect]
     Active Substance: SALICYLIC ACID
  2. PROACTIV PLUS PORE TARGETING TREATMENT [Suspect]
     Active Substance: BENZOYL PEROXIDE
  3. PROACTIV PLUS COMPLEXION PERFECTING HYDRATOR [Suspect]
     Active Substance: SALICYLIC ACID

REACTIONS (2)
  - Rash [Unknown]
  - Anaphylactic shock [Unknown]
